FAERS Safety Report 20852157 (Version 1)
Quarter: 2022Q2

REPORT INFORMATION
  Report Type: Report from Study
  Country: BG (occurrence: BG)
  Receive Date: 20220520
  Receipt Date: 20220520
  Transmission Date: 20220721
  Serious: Yes (Hospitalization, Other)
  Sender: FDA-Public Use
  Company Number: BG-ABBVIE-22K-022-4400886-00

PATIENT
  Age: 67 Year
  Sex: Male

DRUGS (4)
  1. HUMIRA [Suspect]
     Active Substance: ADALIMUMAB
     Indication: Crohn^s disease
     Route: 058
     Dates: start: 202006
  2. BUDESONIDE [Concomitant]
     Active Substance: BUDESONIDE
     Indication: Crohn^s disease
  3. BUTYLSCOPOLAMINE [Concomitant]
     Active Substance: BUTYLSCOPOLAMINE
     Indication: Product used for unknown indication
     Dosage: BUSCOLYSINE
  4. DROTAVERINE HYDROCHLORIDE [Concomitant]
     Active Substance: DROTAVERINE HYDROCHLORIDE
     Indication: Product used for unknown indication

REACTIONS (11)
  - Hypoalbuminaemia [Recovering/Resolving]
  - Hydrocholecystis [Unknown]
  - Hepatic steatosis [Unknown]
  - Pleural effusion [Unknown]
  - Portal hypertension [Unknown]
  - Ascites [Unknown]
  - Pulmonary embolism [Unknown]
  - Gastritis [Unknown]
  - Haemorrhoids [Unknown]
  - Colitis [Unknown]
  - Tumour marker increased [Unknown]
